FAERS Safety Report 4268602-3 (Version None)
Quarter: 2004Q1

REPORT INFORMATION
  Report Type: 
  Country: None (occurrence: None)
  Receive Date: 20040109
  Receipt Date: 20040109
  Transmission Date: 20041129
  Serious: Yes (Hospitalization)
  Sender: FDA-Public Use
  Company Number: None

PATIENT
  Age: 14 Year
  Sex: Female
  Weight: 70 kg

DRUGS (1)
  1. ACYCLOVIR SODIUM [Suspect]
     Dosage: 360MG Q8 IV
     Route: 042
     Dates: start: 20031213, end: 20040102

REACTIONS (4)
  - BLISTER [None]
  - ERYTHEMA [None]
  - INFECTION [None]
  - SOFT TISSUE INJURY [None]
